FAERS Safety Report 15379893 (Version 1)
Quarter: 2018Q3

REPORT INFORMATION
  Report Type: Spontaneous
  Country: US (occurrence: US)
  Receive Date: 20180913
  Receipt Date: 20180913
  Transmission Date: 20181010
  Serious: No
  Sender: FDA-Public Use
  Company Number: US-LUNDBECK-DKLU2054210

PATIENT
  Age: 84 Year
  Sex: Male

DRUGS (2)
  1. NORTHERA [Suspect]
     Active Substance: DROXIDOPA
     Indication: ORTHOSTATIC HYPOTENSION
     Dates: start: 201809
  2. NORTHERA [Suspect]
     Active Substance: DROXIDOPA
     Indication: PARKINSON^S DISEASE
     Dosage: SCHEDULE B, TITRATING
     Dates: start: 20180905

REACTIONS (1)
  - Blood pressure increased [Unknown]

NARRATIVE: CASE EVENT DATE: 201809
